FAERS Safety Report 4836512-6 (Version None)
Quarter: 2005Q4

REPORT INFORMATION
  Report Type: 
  Country: None (occurrence: None)
  Receive Date: 20051123
  Receipt Date: 20051117
  Transmission Date: 20060501
  Serious: Yes (Other)
  Sender: FDA-Public Use
  Company Number: DE-GLAXOSMITHKLINE-B0400683A

PATIENT
  Age: 31 Year
  Sex: Male

DRUGS (6)
  1. AMOXICILLIN [Suspect]
     Route: 065
  2. CEFUROXIME SODIUM [Suspect]
     Route: 065
  3. LEVOFLOXACIN [Suspect]
     Route: 065
  4. CLARITHROMYCIN [Suspect]
     Route: 065
  5. AMBROXOL [Concomitant]
     Route: 065
  6. METAMIZOLE [Concomitant]
     Route: 065

REACTIONS (10)
  - ALANINE AMINOTRANSFERASE INCREASED [None]
  - ASCITES [None]
  - ASPARTATE AMINOTRANSFERASE INCREASED [None]
  - CONDITION AGGRAVATED [None]
  - HEPATIC FAILURE [None]
  - HEPATIC FIBROSIS [None]
  - HEPATIC NEOPLASM [None]
  - HEPATIC NEOPLASM MALIGNANT [None]
  - HEPATITIS FULMINANT [None]
  - HEPATOCELLULAR DAMAGE [None]
